FAERS Safety Report 11801978 (Version 1)
Quarter: 2015Q4

REPORT INFORMATION
  Report Type: Spontaneous
  Country: US (occurrence: None)
  Receive Date: 20151203
  Receipt Date: 20151203
  Transmission Date: 20160305
  Serious: Yes (Other)
  Sender: FDA-Public Use
  Company Number: None

PATIENT
  Age: 40 Year
  Sex: Female
  Weight: 77.11 kg

DRUGS (4)
  1. LEVOTHYROXINE .75 [Concomitant]
  2. GADOLINIUM [Suspect]
     Active Substance: GADOLINIUM
     Indication: NUCLEAR MAGNETIC RESONANCE IMAGING BRAIN
     Dates: start: 20151202
  3. LEXAPRO [Concomitant]
     Active Substance: ESCITALOPRAM OXALATE
  4. GRALISE [Concomitant]
     Active Substance: GABAPENTIN

REACTIONS (10)
  - Feeling hot [None]
  - Vomiting [None]
  - Salivary hypersecretion [None]
  - Syncope [None]
  - Nasal pruritus [None]
  - Nausea [None]
  - Throat irritation [None]
  - Feeling abnormal [None]
  - Dizziness [None]
  - Contrast media reaction [None]

NARRATIVE: CASE EVENT DATE: 20151202
